FAERS Safety Report 10993202 (Version 6)
Quarter: 2017Q1

REPORT INFORMATION
  Report Type: Report from Study
  Country: CA (occurrence: CA)
  Receive Date: 20150407
  Receipt Date: 20170201
  Transmission Date: 20170428
  Serious: Yes (Other)
  Sender: FDA-Public Use
  Company Number: PHHY2014CA047249

PATIENT
  Age: 81 Year
  Sex: Male

DRUGS (4)
  1. BISOPROLOL [Concomitant]
     Active Substance: BISOPROLOL
     Indication: PRODUCT USED FOR UNKNOWN INDICATION
     Route: 065
  2. SANDOSTATIN LAR DEPOT [Suspect]
     Active Substance: OCTREOTIDE ACETATE
     Indication: NEUROENDOCRINE TUMOUR
     Dosage: 30 MG, QMO
     Route: 030
     Dates: start: 20140317
  3. SANDOSTATIN LAR DEPOT [Suspect]
     Active Substance: OCTREOTIDE ACETATE
     Dosage: 60 MG, QMO
     Route: 030
  4. SANDOSTATIN LAR DEPOT [Suspect]
     Active Substance: OCTREOTIDE ACETATE
     Dosage: 30 MG, QMO
     Route: 030
     Dates: start: 20160321

REACTIONS (18)
  - Abdominal pain [Recovering/Resolving]
  - Heart rate decreased [Unknown]
  - Blood pressure diastolic decreased [Unknown]
  - Tooth disorder [Unknown]
  - Diarrhoea [Not Recovered/Not Resolved]
  - Decreased appetite [Unknown]
  - Sinusitis [Unknown]
  - Vertigo [Unknown]
  - Nausea [Recovered/Resolved]
  - Body temperature decreased [Unknown]
  - Blood pressure increased [Unknown]
  - Blood glucose increased [Unknown]
  - Flushing [Unknown]
  - Malignant neoplasm progression [Recovering/Resolving]
  - Injection site pain [Unknown]
  - Vomiting [Recovered/Resolved]
  - Blood pressure systolic increased [Unknown]
  - Post procedural complication [Recovered/Resolved]

NARRATIVE: CASE EVENT DATE: 2014
